FAERS Safety Report 5967259-0 (Version None)
Quarter: 2008Q4

REPORT INFORMATION
  Report Type: 
  Country: None (occurrence: None)
  Receive Date: 20081125
  Receipt Date: 20081016
  Transmission Date: 20090506
  Serious: No
  Sender: FDA-Public Use
  Company Number: US-AMGEN-KDL314023

PATIENT
  Sex: Female

DRUGS (2)
  1. ENBREL [Suspect]
     Indication: PSORIATIC ARTHROPATHY
     Route: 058
     Dates: start: 20080520
  2. ENBREL [Suspect]
     Indication: PSORIASIS

REACTIONS (4)
  - ERYTHEMA [None]
  - EXCORIATION [None]
  - INJURY [None]
  - WOUND HAEMORRHAGE [None]
